FAERS Safety Report 6139812-5 (Version None)
Quarter: 2009Q2

REPORT INFORMATION
  Report Type: 
  Country: None (occurrence: None)
  Receive Date: 20090401
  Receipt Date: 20090320
  Transmission Date: 20091009
  Serious: Yes (Other)
  Sender: FDA-Public Use
  Company Number: B0566966A

PATIENT

DRUGS (1)
  1. MELPHALAN [Suspect]

REACTIONS (2)
  - PULMONARY TOXICITY [None]
  - PYREXIA [None]
